FAERS Safety Report 8887260 (Version 2)
Quarter: 2012Q4

REPORT INFORMATION
  Report Type: 
  Country: IT (occurrence: IT)
  Receive Date: 20121105
  Receipt Date: 20121108
  Transmission Date: 20130627
  Serious: Yes (Death)
  Sender: FDA-Public Use
  Company Number: IT-PFIZER INC-2012273440

PATIENT
  Age: 62 Year
  Sex: Male
  Weight: 78 kg

DRUGS (1)
  1. CRIZOTINIB [Suspect]
     Indication: NON-SMALL CELL LUNG CANCER
     Dosage: 250 mg, 2x/day
     Route: 048
     Dates: start: 20120321, end: 20121001

REACTIONS (2)
  - Disease progression [Fatal]
  - Non-small cell lung cancer [Fatal]
